FAERS Safety Report 14200793 (Version 2)
Quarter: 2017Q4

REPORT INFORMATION
  Report Type: Spontaneous
  Country: US (occurrence: US)
  Receive Date: 20171117
  Receipt Date: 20171215
  Transmission Date: 20180321
  Serious: No
  Sender: FDA-Public Use
  Company Number: US-NOVOPROD-545827

PATIENT
  Age: 77 Year
  Sex: Female

DRUGS (3)
  1. NOVOLOG [Suspect]
     Active Substance: INSULIN ASPART
     Indication: TYPE 2 DIABETES MELLITUS
     Route: 058
     Dates: start: 2013
  2. TRAMADOL. [Concomitant]
     Active Substance: TRAMADOL
     Indication: PAIN
     Route: 048
  3. LEVEMIR [Suspect]
     Active Substance: INSULIN DETEMIR
     Indication: TYPE 2 DIABETES MELLITUS
     Route: 058
     Dates: start: 2013

REACTIONS (2)
  - Tremor [Unknown]
  - Dyskinesia [Unknown]
